FAERS Safety Report 10226716 (Version 3)
Quarter: 2014Q2

REPORT INFORMATION
  Report Type: Spontaneous
  Country: ES (occurrence: ES)
  Receive Date: 20140610
  Receipt Date: 20140617
  Transmission Date: 20141212
  Serious: Yes (Other)
  Sender: FDA-Public Use
  Company Number: ES-AMGEN INC.-ESPSP2014037855

PATIENT
  Age: 47 Year
  Sex: Female

DRUGS (2)
  1. ENBREL [Suspect]
     Indication: PSORIATIC ARTHROPATHY
     Dosage: 50 MG, WEEKLY (ON TUESDAYS)
     Route: 058
  2. VOLTAREN                           /00372302/ [Concomitant]
     Indication: ANTIINFLAMMATORY THERAPY
     Dosage: 75 MG, EVERY 24 HRS

REACTIONS (5)
  - Road traffic accident [Not Recovered/Not Resolved]
  - Fibula fracture [Not Recovered/Not Resolved]
  - Haematoma [Recovering/Resolving]
  - Inflammation [Not Recovered/Not Resolved]
  - Diarrhoea [Not Recovered/Not Resolved]
